FAERS Safety Report 22708954 (Version 3)
Quarter: 2024Q1

REPORT INFORMATION
  Report Type: Report from Study
  Country: US (occurrence: US)
  Receive Date: 20230716
  Receipt Date: 20240109
  Transmission Date: 20240410
  Serious: Yes (Hospitalization, Other)
  Sender: FDA-Public Use
  Company Number: US-ABBVIE-4766751

PATIENT
  Sex: Female

DRUGS (2)
  1. RINVOQ [Suspect]
     Active Substance: UPADACITINIB
     Indication: Rheumatoid arthritis
     Route: 048
     Dates: start: 20230220, end: 20230508
  2. RINVOQ [Suspect]
     Active Substance: UPADACITINIB
     Indication: Rheumatoid arthritis
     Route: 048
     Dates: start: 202309

REACTIONS (5)
  - Idiopathic intracranial hypertension [Unknown]
  - Middle ear disorder [Unknown]
  - Cerebrospinal fluid leakage [Not Recovered/Not Resolved]
  - Colitis ulcerative [Unknown]
  - Procedural complication [Unknown]

NARRATIVE: CASE EVENT DATE: 20230101
